FAERS Safety Report 23015520 (Version 1)
Quarter: 2023Q4

REPORT INFORMATION
  Report Type: Report from Study
  Country: HK (occurrence: None)
  Receive Date: 20231002
  Receipt Date: 20231002
  Transmission Date: 20240109
  Serious: Yes (Hospitalization)
  Sender: FDA-Public Use
  Company Number: 2023A214468

PATIENT
  Age: 65 Year
  Sex: Male
  Weight: 54.1 kg

DRUGS (7)
  1. CILGAVIMAB\TIXAGEVIMAB [Suspect]
     Active Substance: CILGAVIMAB\TIXAGEVIMAB
     Indication: COVID-19
  2. TAMSULOSIN HCL PROLONGED RELEASE TABLET [Concomitant]
     Indication: Product used for unknown indication
     Dosage: 0.4 MG
     Route: 048
     Dates: start: 20230303, end: 20230818
  3. BISOPROLOL FUMARATE TABLET [Concomitant]
     Indication: Hypertension
     Dosage: AS NEEDED
     Route: 048
     Dates: start: 20230215, end: 20230805
  4. SENNA TABLET [Concomitant]
     Indication: Supplementation therapy
     Dosage: AS NEEDED
     Route: 048
     Dates: start: 20220722
  5. TELFAST D EXTENDED RELEASE TABLET [Concomitant]
     Indication: Product used for unknown indication
     Dosage: 1 TABLET
     Route: 048
     Dates: start: 20210708
  6. SPIRONOLACTONE [Concomitant]
     Active Substance: SPIRONOLACTONE
     Indication: Hypertension
     Dosage: AS NEEDED
     Route: 048
     Dates: start: 20230307, end: 20230713
  7. MELATONIN CAPSULE [Concomitant]
     Indication: Product used for unknown indication
     Dosage: 3 MG
     Route: 048
     Dates: start: 20230203, end: 20230624

REACTIONS (2)
  - Chest pain [Recovered/Resolved]
  - Hypoaesthesia [Recovered/Resolved]

NARRATIVE: CASE EVENT DATE: 20230410
